FAERS Safety Report 7146266-9 (Version None)
Quarter: 2010Q4

REPORT INFORMATION
  Report Type: 
  Country: None (occurrence: None)
  Receive Date: 20101208
  Receipt Date: 20100616
  Transmission Date: 20110411
  Serious: Yes (Hospitalization, Other)
  Sender: FDA-Public Use
  Company Number: JP-ACTELION-A-CH2010-42042

PATIENT
  Age: 36 Year
  Sex: Female

DRUGS (8)
  1. TRACLEER [Suspect]
     Indication: PULMONARY ARTERIAL HYPERTENSION
     Dosage: 62.5 MG, OD
     Route: 048
  2. TRACLEER [Suspect]
     Dosage: 125 MG, OD
     Route: 048
  3. PROSTAGLANDIN I2 [Concomitant]
  4. DOBUTAMINE [Concomitant]
  5. DOPAMINE [Concomitant]
  6. FUROSEMIDE [Concomitant]
  7. HEPARIN [Concomitant]
  8. SILDENAFIL [Concomitant]

REACTIONS (6)
  - ABORTION INDUCED [None]
  - EPIDURAL ANAESTHESIA [None]
  - MUSCLE STRAIN [None]
  - PLATELET COUNT DECREASED [None]
  - PLATELET TRANSFUSION [None]
  - PREGNANCY [None]
